FAERS Safety Report 8986095 (Version 2)
Quarter: 2013Q1

REPORT INFORMATION
  Report Type: Spontaneous
  Country: DK (occurrence: None)
  Receive Date: 20121217
  Receipt Date: 20130128
  Transmission Date: 20140127
  Serious: Yes (Hospitalization)
  Sender: FDA-Public Use
  Company Number: 2012MA014077

PATIENT
  Age: 33 Year
  Sex: Male

DRUGS (2)
  1. FEVERALL [Suspect]
     Dates: start: 20121128
  2. CLOZARIL (CLOZAPINE) [Suspect]
     Route: 048
     Dates: start: 20120131

REACTIONS (2)
  - Overdose [None]
  - Liver injury [None]
